FAERS Safety Report 25149118 (Version 2)
Quarter: 2025Q2

REPORT INFORMATION
  Report Type: Spontaneous
  Country: GB (occurrence: GB)
  Receive Date: 20250402
  Receipt Date: 20250416
  Transmission Date: 20250717
  Serious: Yes (Other)
  Sender: TEVA
  Company Number: GB-TEVA-VS-3315537

PATIENT
  Age: 66 Year
  Sex: Male

DRUGS (3)
  1. PREDNISOLONE [Suspect]
     Active Substance: PREDNISOLONE
     Indication: Immune thrombocytopenia
     Route: 048
     Dates: start: 2022, end: 2022
  2. PREDNISOLONE [Suspect]
     Active Substance: PREDNISOLONE
     Indication: Immune thrombocytopenia
     Route: 048
     Dates: start: 2022
  3. AZATHIOPRINE [Concomitant]
     Active Substance: AZATHIOPRINE
     Indication: Immune thrombocytopenia
     Route: 065
     Dates: start: 2022

REACTIONS (3)
  - Deep vein thrombosis [Unknown]
  - Osteonecrosis [Unknown]
  - Spinal disorder [Unknown]

NARRATIVE: CASE EVENT DATE: 20221001
